FAERS Safety Report 13497569 (Version 3)
Quarter: 2018Q3

REPORT INFORMATION
  Report Type: Report from Study
  Country: US (occurrence: US)
  Receive Date: 20170428
  Receipt Date: 20180801
  Transmission Date: 20181010
  Serious: No
  Sender: FDA-Public Use
  Company Number: US-AMGEN-USASL2017061993

PATIENT
  Age: 46 Year
  Sex: Female

DRUGS (4)
  1. IMURAN [Concomitant]
     Active Substance: AZATHIOPRINE
  2. PREDNISONE. [Concomitant]
     Active Substance: PREDNISONE
  3. NPLATE [Suspect]
     Active Substance: ROMIPLOSTIM
     Indication: IMMUNE THROMBOCYTOPENIC PURPURA
     Dosage: 626 MUG, QWK
     Route: 065
  4. IMMUNOGLOBULIN [Concomitant]
     Route: 042

REACTIONS (14)
  - Fatigue [Unknown]
  - Headache [Unknown]
  - Drug effect decreased [Recovering/Resolving]
  - Insomnia [Unknown]
  - Malaise [Unknown]
  - Platelet disorder [Unknown]
  - Fluid retention [Unknown]
  - Oropharyngeal pain [Unknown]
  - Myalgia [Unknown]
  - Oral mucosal blistering [Unknown]
  - Asthenia [Unknown]
  - Flushing [Unknown]
  - Arthralgia [Unknown]
  - Nasopharyngitis [Unknown]
